FAERS Safety Report 5548403-6 (Version None)
Quarter: 2007Q4

REPORT INFORMATION
  Report Type: 
  Country: None (occurrence: None)
  Receive Date: 20071206
  Receipt Date: 20071130
  Transmission Date: 20080405
  Serious: Yes (Other)
  Sender: FDA-Public Use
  Company Number: 2007SP020905

PATIENT
  Age: 7 Year
  Sex: Male
  Weight: 27 kg

DRUGS (1)
  1. DESLORATADINE [Suspect]
     Indication: COUGH
     Dosage: 5 ML; QD; PO
     Route: 048
     Dates: start: 20070801, end: 20070905

REACTIONS (1)
  - CYTOLYTIC HEPATITIS [None]
